FAERS Safety Report 5289614-7 (Version None)
Quarter: 2007Q1

REPORT INFORMATION
  Report Type: 
  Country: None (occurrence: None)
  Receive Date: 20070116
  Receipt Date: 20051220
  Transmission Date: 20070707
  Serious: Yes (Other)
  Sender: FDA-Public Use
  Company Number: HQWYE214103JUN05

PATIENT
  Age: 63 Year
  Sex: Female
  Weight: 95.34 kg

DRUGS (3)
  1. PREMPRO [Suspect]
  2. ESTROGENS SOL/INJ [Suspect]
  3. PREMARIN [Suspect]

REACTIONS (1)
  - BREAST CANCER [None]
